FAERS Safety Report 9699869 (Version 2)
Quarter: 2013Q4

REPORT INFORMATION
  Report Type: Report from Study
  Country: DE (occurrence: DE)
  Receive Date: 20131121
  Receipt Date: 20131216
  Transmission Date: 20140711
  Serious: Yes (Hospitalization)
  Sender: FDA-Public Use
  Company Number: DE-PFIZER INC-2013322987

PATIENT
  Age: 54 Year
  Sex: Male
  Weight: 106.1 kg

DRUGS (9)
  1. TOFACITINIB CITRATE [Suspect]
     Indication: PSORIASIS
     Dosage: 5 MG, 2X/DAY IN THE MORNING AND IN THE EVENING
     Route: 048
     Dates: start: 20130626, end: 20131110
  2. CO-DIOVAN [Concomitant]
     Indication: HYPERTENSION
     Dosage: 160/12.5 MG, 1X/DAY
     Route: 048
     Dates: start: 201201
  3. APIDRA [Concomitant]
     Indication: DIABETES MELLITUS
     Dosage: 12-10-10- UNITS DAILY
     Route: 058
     Dates: start: 201204
  4. INSUMAN BASAL [Concomitant]
     Indication: DIABETES MELLITUS
     Dosage: 20 IU ONCE DAILY AT NIGHT
     Route: 058
     Dates: start: 201204
  5. XELEVIA [Concomitant]
     Indication: DIABETES MELLITUS
     Dosage: DAILY
     Route: 048
     Dates: start: 201103
  6. METAMIZOLE [Concomitant]
     Indication: PAIN
     Dosage: 500 MG, 2X/DAY
     Route: 048
     Dates: start: 2007
  7. VALORON [Concomitant]
     Indication: PAIN
     Dosage: 100/8 MG 2X/DAY
     Route: 048
     Dates: start: 201204
  8. ALLOPURINOL [Concomitant]
     Indication: HYPERURICAEMIA
     Dosage: DAILY
     Route: 048
     Dates: start: 2012
  9. VALDOXAN [Concomitant]
     Indication: DEPRESSION
     Dosage: 25 MG, 1X/DAY AT NIGHT
     Route: 048
     Dates: start: 20120820

REACTIONS (2)
  - Cholangitis [Recovered/Resolved]
  - Hyperglycaemia [Recovered/Resolved]
